FAERS Safety Report 14818811 (Version 1)
Quarter: 2018Q2

REPORT INFORMATION
  Report Type: Spontaneous
  Country: US (occurrence: US)
  Receive Date: 20180417
  Receipt Date: 20180417
  Transmission Date: 20180711
  Serious: Yes (Hospitalization)
  Sender: FDA-Public Use
  Company Number: None

PATIENT
  Age: 34 Year
  Sex: Female
  Weight: 61.7 kg

DRUGS (1)
  1. GLATIRAMER [Suspect]
     Active Substance: GLATIRAMER
     Indication: RELAPSING-REMITTING MULTIPLE SCLEROSIS
     Route: 058
     Dates: start: 20180228, end: 20180409

REACTIONS (5)
  - Dyspnoea [None]
  - Chest discomfort [None]
  - Urticaria [None]
  - Chest pain [None]
  - Hyperhidrosis [None]

NARRATIVE: CASE EVENT DATE: 20180409
